FAERS Safety Report 4333924-4 (Version None)
Quarter: 2004Q2

REPORT INFORMATION
  Report Type: 
  Country: None (occurrence: None)
  Receive Date: 20040405
  Receipt Date: 20040405
  Transmission Date: 20050107
  Serious: Yes (Hospitalization)
  Sender: FDA-Public Use
  Company Number: None

PATIENT
  Age: 49 Year
  Sex: Male

DRUGS (1)
  1. QUETIAPINE 200 MG TABLETS ASTRA-ZENECA [Suspect]
     Indication: SCHIZOPHRENIA
     Dosage: 200MG PO Q AM 400 MG PO QHS
     Route: 048
     Dates: start: 20040317, end: 20040317

REACTIONS (18)
  - BLOOD PRESSURE ORTHOSTATIC DECREASED [None]
  - CEREBROVASCULAR ACCIDENT [None]
  - CONVULSION [None]
  - DIARRHOEA [None]
  - EROSIVE OESOPHAGITIS [None]
  - FATIGUE [None]
  - GASTRITIS [None]
  - GASTROINTESTINAL HAEMORRHAGE [None]
  - MARKEDLY REDUCED DIETARY INTAKE [None]
  - MUSCLE TIGHTNESS [None]
  - OESOPHAGITIS [None]
  - PULSE ABNORMAL [None]
  - PYREXIA [None]
  - SEDATION [None]
  - TOOTH DISORDER [None]
  - TREATMENT NONCOMPLIANCE [None]
  - VOMITING [None]
  - WHITE BLOOD CELL COUNT INCREASED [None]
